FAERS Safety Report 12627125 (Version 1)
Quarter: 2016Q3

REPORT INFORMATION
  Report Type: Spontaneous
  Country: IT (occurrence: IT)
  Receive Date: 20160805
  Receipt Date: 20160805
  Transmission Date: 20161109
  Serious: Yes (Death, Hospitalization, Other)
  Sender: FDA-Public Use
  Company Number: IT-BRISTOL-MYERS SQUIBB COMPANY-BMS-2016-063073

PATIENT
  Age: 49 Year
  Sex: Male

DRUGS (1)
  1. OPDIVO [Suspect]
     Active Substance: NIVOLUMAB
     Indication: SQUAMOUS CELL CARCINOMA OF LUNG
     Dosage: 216 MG, QCYCLE
     Route: 042
     Dates: start: 20160711

REACTIONS (9)
  - Dyspnoea [Unknown]
  - Decreased appetite [Unknown]
  - Pain [Unknown]
  - Catarrh [Unknown]
  - General physical health deterioration [Unknown]
  - Pneumonia [Fatal]
  - Haemoptysis [Unknown]
  - Cold sweat [Unknown]
  - Cough [Unknown]

NARRATIVE: CASE EVENT DATE: 20160713
